FAERS Safety Report 8435441-9 (Version None)
Quarter: 2012Q2

REPORT INFORMATION
  Report Type: 
  Country: None (occurrence: None)
  Receive Date: 20120614
  Receipt Date: 20120607
  Transmission Date: 20120825
  Serious: Yes (Hospitalization)
  Sender: FDA-Public Use
  Company Number: US-UCBSA-042420

PATIENT
  Age: 58 Year
  Sex: Male
  Weight: 70 kg

DRUGS (18)
  1. LYRICA [Concomitant]
     Indication: NEURALGIA
     Route: 048
     Dates: start: 20020101
  2. ADVAIR DISKUS 100/50 [Concomitant]
     Indication: ASTHMA
     Dosage: DOSAGE PER INTAKE : 250/50 MG
     Route: 055
     Dates: start: 20020101
  3. CEREBREX [Concomitant]
     Indication: RHEUMATOID ARTHRITIS
     Route: 048
     Dates: start: 20011201
  4. TRAMADOL HCL [Concomitant]
     Indication: BACK PAIN
     Route: 048
     Dates: start: 20020101
  5. SEROQUEL [Concomitant]
     Indication: DISSOCIATIVE IDENTITY DISORDER
     Route: 048
     Dates: start: 20030101
  6. ADVAIR DISKUS 100/50 [Concomitant]
     Indication: CHRONIC OBSTRUCTIVE PULMONARY DISEASE
     Dosage: DOSAGE PER INTAKE : 250/50 MG
     Route: 055
     Dates: start: 20020101
  7. LIPITOR [Concomitant]
     Indication: DYSLIPIDAEMIA
     Route: 048
     Dates: start: 20000101
  8. NICODERM [Concomitant]
     Indication: TOBACCO USER
     Dates: start: 20101225
  9. SEROQUEL [Concomitant]
     Route: 048
     Dates: start: 20030101
  10. LEXAPRO [Concomitant]
     Indication: DEPRESSION
     Route: 048
     Dates: start: 20030101
  11. ATENOLOL AND CHLORTHALIDONE [Concomitant]
     Dosage: DOSE PER INTAKE : 100/25 MG
     Route: 048
     Dates: start: 20000101
  12. CIMZIA [Suspect]
     Indication: RHEUMATOID ARTHRITIS
     Dosage: DOSE : 200 MG/ML
     Route: 058
     Dates: start: 20110509, end: 20110927
  13. ATENOLOL AND CHLORTHALIDONE [Concomitant]
     Indication: HYPERTENSION
     Dosage: DOSE PER INTAKE : 100/25 MG
     Route: 048
     Dates: start: 20000101
  14. LEUCOVORIN CALCIUM [Concomitant]
     Indication: SUPPLEMENTATION THERAPY
     Route: 048
     Dates: start: 20011201
  15. METHOTREXATE [Concomitant]
     Indication: RHEUMATOID ARTHRITIS
     Dosage: 2.5 X 7
     Route: 048
     Dates: start: 20101001
  16. SPIRIVA [Concomitant]
     Indication: CHRONIC OBSTRUCTIVE PULMONARY DISEASE
     Route: 055
     Dates: start: 20020101
  17. TRAMADOL HCL [Concomitant]
     Dates: start: 20021201
  18. PROPRANOLOL [Concomitant]
     Indication: HYPERTENSION
     Dosage: AS NESSESARY
     Route: 048
     Dates: start: 20080101

REACTIONS (1)
  - ALCOHOL POISONING [None]
